FAERS Safety Report 19189163 (Version 1)
Quarter: 2021Q2

REPORT INFORMATION
  Report Type: Spontaneous
  Country: US (occurrence: US)
  Receive Date: 20210427
  Receipt Date: 20210427
  Transmission Date: 20210717
  Serious: Yes (Disabling)
  Sender: FDA-Public Use
  Company Number: None

PATIENT
  Age: 32 Year
  Weight: 69.75 kg

DRUGS (7)
  1. VITAMIN D [Concomitant]
     Active Substance: VITAMIN D NOS
  2. EFFEXOR [Suspect]
     Active Substance: VENLAFAXINE HYDROCHLORIDE
     Indication: ANXIETY
     Dosage: ?          QUANTITY:1 TABLET(S);?
     Route: 048
     Dates: start: 20201031, end: 20201130
  3. ESTRADIOL. [Concomitant]
     Active Substance: ESTRADIOL
  4. EMTRICITABINE [Concomitant]
     Active Substance: EMTRICITABINE
  5. TESTOSTERONE. [Concomitant]
     Active Substance: TESTOSTERONE
  6. EFFEXOR [Suspect]
     Active Substance: VENLAFAXINE HYDROCHLORIDE
     Indication: SEXUAL DYSFUNCTION
     Dosage: ?          QUANTITY:1 TABLET(S);?
     Route: 048
     Dates: start: 20201031, end: 20201130
  7. NORLYDA [Concomitant]
     Active Substance: NORETHINDRONE

REACTIONS (5)
  - Loss of libido [None]
  - Mood swings [None]
  - Genital hypoaesthesia [None]
  - Hypoaesthesia [None]
  - Anger [None]

NARRATIVE: CASE EVENT DATE: 20201031
